FAERS Safety Report 16129292 (Version 1)
Quarter: 2019Q1

REPORT INFORMATION
  Report Type: Spontaneous
  Country: US (occurrence: US)
  Receive Date: 20190328
  Receipt Date: 20190328
  Transmission Date: 20190418
  Serious: Yes (Hospitalization, Other)
  Sender: FDA-Public Use
  Company Number: US-GILEAD-2019-0398793

PATIENT
  Sex: Female

DRUGS (1)
  1. SOVALDI [Suspect]
     Active Substance: SOFOSBUVIR
     Indication: CHRONIC HEPATITIS C
     Dosage: UNK
     Route: 065
     Dates: start: 2014, end: 2014

REACTIONS (12)
  - Jaundice [Unknown]
  - Coma [Recovered/Resolved]
  - Hepatic mass [Not Recovered/Not Resolved]
  - Hepatic cirrhosis [Not Recovered/Not Resolved]
  - Bipolar disorder [Unknown]
  - Anxiety [Unknown]
  - Dyspnoea [Unknown]
  - Hepatocellular carcinoma [Not Recovered/Not Resolved]
  - Hepatitis C [Not Recovered/Not Resolved]
  - Drug ineffective [Not Recovered/Not Resolved]
  - Pruritus [Unknown]
  - Oesophageal varices haemorrhage [Unknown]

NARRATIVE: CASE EVENT DATE: 2017
